FAERS Safety Report 8170277-8 (Version None)
Quarter: 2012Q1

REPORT INFORMATION
  Report Type: 
  Country: None (occurrence: None)
  Receive Date: 20120104
  Receipt Date: 20111025
  Transmission Date: 20120608
  Serious: No
  Sender: FDA-Public Use
  Company Number: 2011HGS-002683

PATIENT
  Age: 44 Year
  Sex: Female
  Weight: 95.2554 kg

DRUGS (24)
  1. IMURAN [Concomitant]
  2. RELPAX (ELETRIPTAN HYDROBORMIDE) (ELETRIPTAN HYDROBROMIDE) [Concomitant]
  3. BIOTIN (BIOTIN) (BIOTIN) [Concomitant]
  4. WELLBUTRIN XR(BUPROPION HYDROCHLORIDE) (BUPROPION HYDROCHLORIDE) [Concomitant]
  5. MAGNESIUM OXIDE (MAGNESIUM OXIDE) (MAGNESIUM OXIDE) [Concomitant]
  6. PREDNISONE [Concomitant]
  7. PROMETHAZINE (PROMETHAZINE) (PROMETHAZINE) [Concomitant]
  8. BENLYSTA [Suspect]
     Indication: SYSTEMIC LUPUS ERYTHEMATOSUS
     Dosage: INTRAVENOUS DRIP
     Route: 041
     Dates: start: 20110913, end: 20110913
  9. DIOVAN [Concomitant]
  10. PLAVIX [Concomitant]
  11. IRON (IRON) (IRON) [Concomitant]
  12. GABAPENTIN [Concomitant]
  13. LIDODERM (LIDOCAINE) (LIDOCAINE) [Concomitant]
  14. METFORMIN HCL [Concomitant]
  15. DIAZEPAM [Concomitant]
  16. OXAPROZIN (OXAPROZIN) (OXAPROZIN) [Concomitant]
  17. SEROQUEL (QUETIAPINE FUMARATE) (QUETIAPINE FUMARATE) [Concomitant]
  18. ATENOLOL [Concomitant]
  19. DICYCLOMINE (DICYCLOVERINE) (DICYCLOVERINE) [Concomitant]
  20. LISINOPRIL [Concomitant]
  21. PRAZOSIN (PRAZOSIN) (PRAZOSIN) [Concomitant]
  22. BUSPIRONE (BUSPIRONE) (BUSPIRONE) [Concomitant]
  23. NEXIUM [Concomitant]
  24. NORTRIPTYLINE HCL [Concomitant]

REACTIONS (4)
  - PHARYNGITIS [None]
  - ANXIETY [None]
  - DEPRESSION [None]
  - CHILLS [None]
